FAERS Safety Report 6406100-9 (Version None)
Quarter: 2009Q4

REPORT INFORMATION
  Report Type: 
  Country: None (occurrence: None)
  Receive Date: 20091019
  Receipt Date: 20091009
  Transmission Date: 20100525
  Serious: Yes (Other)
  Sender: FDA-Public Use
  Company Number: US-ELI_LILLY_AND_COMPANY-US200908006568

PATIENT
  Sex: Female

DRUGS (7)
  1. FORTEO [Suspect]
     Dates: start: 20080201, end: 20090801
  2. SOLODYN [Concomitant]
  3. ELTROXIN [Concomitant]
  4. ADVIL LIQUI-GELS [Concomitant]
     Dosage: UNK, AS NEEDED
  5. CALCIUM W/VITAMIN D NOS [Concomitant]
  6. FOSAMAX [Concomitant]
     Dates: start: 20080301, end: 20090901
  7. SYNTHROID [Concomitant]
     Indication: HYPOTHYROIDISM

REACTIONS (2)
  - ARTHRALGIA [None]
  - TEMPOROMANDIBULAR JOINT SYNDROME [None]
